FAERS Safety Report 19741782 (Version 1)
Quarter: 2021Q3

REPORT INFORMATION
  Report Type: Spontaneous
  Country: IN (occurrence: IN)
  Receive Date: 20210825
  Receipt Date: 20210825
  Transmission Date: 20211014
  Serious: Yes (Hospitalization, Other)
  Sender: FDA-Public Use
  Company Number: IN-CIPLA (EU) LIMITED-2021IN05779

PATIENT

DRUGS (36)
  1. ANASTROZOLE. [Suspect]
     Active Substance: ANASTROZOLE
     Indication: BREAST CANCER METASTATIC
     Dosage: UNK
     Route: 065
  2. GEMCITABINE. [Suspect]
     Active Substance: GEMCITABINE
     Indication: BREAST CANCER METASTATIC
     Dosage: UNK, CYCLE 1 DAY1
     Route: 065
     Dates: start: 20210403
  3. CARBOPLATIN. [Suspect]
     Active Substance: CARBOPLATIN
     Dosage: UNK, CYCLE 3 DAY1
     Route: 065
     Dates: start: 20210513
  4. DOCETAXEL. [Suspect]
     Active Substance: DOCETAXEL
     Indication: BREAST CANCER METASTATIC
     Dosage: UNK
     Route: 065
  5. PACLITAXEL. [Suspect]
     Active Substance: PACLITAXEL
     Dosage: UNK, WEEK 1
     Route: 065
     Dates: start: 20201021
  6. PACLITAXEL. [Suspect]
     Active Substance: PACLITAXEL
     Dosage: UNK, WEEK 2
     Route: 065
     Dates: start: 20201029
  7. PACLITAXEL. [Suspect]
     Active Substance: PACLITAXEL
     Dosage: UNK, WEEK 11
     Route: 065
     Dates: start: 20210123
  8. PACLITAXEL. [Suspect]
     Active Substance: PACLITAXEL
     Dosage: UNK, WEEK 16
     Route: 065
     Dates: start: 20210308
  9. EPIRUBICIN [Suspect]
     Active Substance: EPIRUBICIN
     Indication: BREAST CANCER METASTATIC
     Dosage: UNK, 1ST CYCLE
     Route: 065
     Dates: start: 20180511
  10. CYCLOPHOSPHAMIDE. [Suspect]
     Active Substance: CYCLOPHOSPHAMIDE
     Dosage: UNK, 3RD CYCLE
     Route: 065
  11. GEMCITABINE. [Suspect]
     Active Substance: GEMCITABINE
     Dosage: UNK, CYCLE 3 DAY8
     Route: 065
     Dates: start: 20210520
  12. CARBOPLATIN. [Suspect]
     Active Substance: CARBOPLATIN
     Indication: BREAST CANCER METASTATIC
     Dosage: UNK, CYCLE 1 DAY1
     Route: 065
     Dates: start: 20210403
  13. PACLITAXEL. [Suspect]
     Active Substance: PACLITAXEL
     Dosage: UNK, WEEK 9
     Route: 065
     Dates: start: 20210109
  14. PACLITAXEL. [Suspect]
     Active Substance: PACLITAXEL
     Dosage: UNK, WEEK 12
     Route: 065
     Dates: start: 20210130
  15. PACLITAXEL. [Suspect]
     Active Substance: PACLITAXEL
     Dosage: UNK, WEEK 14
     Route: 065
     Dates: start: 20210222
  16. EPIRUBICIN [Suspect]
     Active Substance: EPIRUBICIN
     Dosage: UNK, 2ND CYCLE
     Route: 065
     Dates: start: 20180601
  17. EPIRUBICIN [Suspect]
     Active Substance: EPIRUBICIN
     Dosage: UNK, 3RD CYCLE
     Route: 065
  18. CYCLOPHOSPHAMIDE. [Suspect]
     Active Substance: CYCLOPHOSPHAMIDE
     Dosage: UNK, 2ND CYCLE
     Route: 065
     Dates: start: 20180601
  19. GEMCITABINE. [Suspect]
     Active Substance: GEMCITABINE
     Dosage: UNK, CYCLE 2 DAY8
     Route: 065
     Dates: start: 20210428
  20. PACLITAXEL. [Suspect]
     Active Substance: PACLITAXEL
     Dosage: UNK, WEEK 5
     Route: 065
     Dates: start: 20201203
  21. PACLITAXEL. [Suspect]
     Active Substance: PACLITAXEL
     Dosage: UNK, WEEK 15
     Route: 065
     Dates: start: 20210301
  22. THYRONORM [Concomitant]
     Active Substance: LEVOTHYROXINE
     Indication: HYPOTHYROIDISM
     Dosage: 12.5 MCG, UNK
     Route: 065
  23. CARBOPLATIN. [Suspect]
     Active Substance: CARBOPLATIN
     Dosage: UNK, CYCLE 2 DAY1
     Route: 065
     Dates: start: 20210420
  24. CARBOPLATIN. [Suspect]
     Active Substance: CARBOPLATIN
     Dosage: UNK, CYCLE 3 DAY8
     Route: 065
     Dates: start: 20210520
  25. PACLITAXEL. [Suspect]
     Active Substance: PACLITAXEL
     Dosage: UNK, WEEK 4
     Route: 065
     Dates: start: 20201124
  26. CYCLOPHOSPHAMIDE. [Suspect]
     Active Substance: CYCLOPHOSPHAMIDE
     Indication: BREAST CANCER METASTATIC
     Dosage: UNK, 1ST CYCLE
     Route: 065
     Dates: start: 20180511
  27. CARBOPLATIN. [Suspect]
     Active Substance: CARBOPLATIN
     Dosage: UNK, CYCLE 2 DAY8
     Route: 065
     Dates: start: 20210428
  28. GEMCITABINE. [Suspect]
     Active Substance: GEMCITABINE
     Dosage: UNK, CYCLE 2 DAY1
     Route: 065
     Dates: start: 20210420
  29. GEMCITABINE. [Suspect]
     Active Substance: GEMCITABINE
     Dosage: UNK, CYCLE 3 DAY1
     Route: 065
     Dates: start: 20210513
  30. PACLITAXEL. [Suspect]
     Active Substance: PACLITAXEL
     Dosage: UNK, WEEK 3
     Route: 065
     Dates: start: 20201105
  31. PACLITAXEL. [Suspect]
     Active Substance: PACLITAXEL
     Dosage: UNK, WEEK 6
     Route: 065
     Dates: start: 20201210
  32. PACLITAXEL. [Suspect]
     Active Substance: PACLITAXEL
     Indication: BREAST CANCER METASTATIC
     Dosage: UNK
     Route: 065
  33. PACLITAXEL. [Suspect]
     Active Substance: PACLITAXEL
     Dosage: UNK, WEEK 7
     Route: 065
     Dates: start: 20201218
  34. PACLITAXEL. [Suspect]
     Active Substance: PACLITAXEL
     Dosage: UNK, WEEK 8
     Route: 065
     Dates: start: 20210102
  35. PACLITAXEL. [Suspect]
     Active Substance: PACLITAXEL
     Dosage: UNK, WEEK 10
     Route: 065
     Dates: start: 20210115
  36. PACLITAXEL. [Suspect]
     Active Substance: PACLITAXEL
     Dosage: UNK, WEEK 13
     Route: 065
     Dates: start: 20210213

REACTIONS (4)
  - Hepatic encephalopathy [Recovering/Resolving]
  - Hypercalcaemia of malignancy [Recovered/Resolved]
  - Thrombocytopenia [Unknown]
  - Liver function test increased [Unknown]

NARRATIVE: CASE EVENT DATE: 202104
